FAERS Safety Report 4897383-5 (Version None)
Quarter: 2006Q1

REPORT INFORMATION
  Report Type: 
  Country: None (occurrence: None)
  Receive Date: 20060130
  Receipt Date: 20060130
  Transmission Date: 20060701
  Serious: Yes (Other)
  Sender: FDA-Public Use
  Company Number: None

PATIENT
  Age: 61 Year
  Sex: Female
  Weight: 78.0187 kg

DRUGS (4)
  1. KETEK [Suspect]
     Indication: BRONCHITIS
     Dosage: 800 MG DAILY ORAL
     Route: 048
     Dates: start: 20040928, end: 20041005
  2. KETEK [Suspect]
     Indication: BRONCHITIS
     Dosage: 800 MG DAILY ORAL
     Route: 048
     Dates: start: 20060105, end: 20060112
  3. BEXTRA [Concomitant]
  4. SYNTHROID [Concomitant]

REACTIONS (4)
  - ARTHRALGIA [None]
  - LIVER FUNCTION TEST ABNORMAL [None]
  - MALAISE [None]
  - PYREXIA [None]
